FAERS Safety Report 4643903-5 (Version None)
Quarter: 2005Q2

REPORT INFORMATION
  Report Type: 
  Country: None (occurrence: None)
  Receive Date: 20050425
  Receipt Date: 20050413
  Transmission Date: 20051028
  Serious: Yes (Other)
  Sender: FDA-Public Use
  Company Number: GB-BRISTOL-MYERS SQUIBB COMPANY-12931267

PATIENT
  Age: 37 Year
  Sex: Female
  Weight: 81 kg

DRUGS (11)
  1. PRAVASTATIN SODIUM [Suspect]
     Indication: BLOOD CHOLESTEROL INCREASED
     Route: 048
     Dates: start: 20041119, end: 20041122
  2. MEBEVERINE HCL [Concomitant]
  3. BECLOMETHASONE [Concomitant]
     Route: 045
  4. FORMOTEROL [Concomitant]
     Dosage: 1-2 ACTUATIONS 1-2 TIMES DAILY.
     Route: 055
  5. SYMBICORT [Concomitant]
     Dosage: 100+6 MCG
     Route: 055
  6. TERBUTALINE [Concomitant]
     Dosage: MCG
  7. ASPIRIN [Concomitant]
     Dosage: 75MG OD
  8. CO-DIOVAN [Concomitant]
     Dosage: 80+12.5 MG OD
  9. METFORMIN HCL [Concomitant]
     Dosage: 850 MG TDS
  10. DOXAZOSIN [Concomitant]
     Dosage: 4 MG OD
  11. NATEGLINIDE [Concomitant]
     Dosage: 1 TDS WITHIN 30MIN BEFORE FOOD

REACTIONS (5)
  - BURNING SENSATION [None]
  - CIRCUMORAL OEDEMA [None]
  - ERYTHEMA [None]
  - RASH [None]
  - SWOLLEN TONGUE [None]
